FAERS Safety Report 9145755 (Version 2)
Quarter: 2013Q3

REPORT INFORMATION
  Report Type: Spontaneous
  Country: BE (occurrence: BE)
  Receive Date: 20130307
  Receipt Date: 20130805
  Transmission Date: 20140515
  Serious: Yes (Death, Hospitalization)
  Sender: FDA-Public Use
  Company Number: BE-JNJFOC-20130216469

PATIENT
  Sex: 0

DRUGS (4)
  1. INFLIXIMAB, RECOMBINANT [Suspect]
     Indication: COLITIS ULCERATIVE
     Route: 042
  2. MESALAMINE [Suspect]
     Indication: COLITIS ULCERATIVE
     Route: 065
  3. CORTICOSTEROIDS [Suspect]
     Indication: COLITIS ULCERATIVE
     Route: 065
  4. IMMUNOMODULATOR [Suspect]
     Indication: COLITIS ULCERATIVE
     Route: 065

REACTIONS (5)
  - Death [Fatal]
  - Neoplasm malignant [Unknown]
  - Colitis ulcerative [Unknown]
  - Infection [Unknown]
  - Post procedural complication [Unknown]
